FAERS Safety Report 7587120-8 (Version None)
Quarter: 2011Q3

REPORT INFORMATION
  Report Type: 
  Country: None (occurrence: None)
  Receive Date: 20110701
  Receipt Date: 20110628
  Transmission Date: 20111222
  Serious: Yes (Death)
  Sender: FDA-Public Use
  Company Number: PHHY2011US58007

PATIENT
  Age: 46 Year
  Sex: Female

DRUGS (4)
  1. ZOMETA [Suspect]
  2. ARANESP [Concomitant]
  3. DOXIL [Concomitant]
  4. CHEMOTHERAPEUTICS NOS [Concomitant]

REACTIONS (1)
  - DEATH [None]
